FAERS Safety Report 23721267 (Version 1)
Quarter: 2024Q2

REPORT INFORMATION
  Report Type: Spontaneous
  Country: US (occurrence: US)
  Receive Date: 20240409
  Receipt Date: 20240409
  Transmission Date: 20240716
  Serious: No
  Sender: FDA-Public Use
  Company Number: US-009507513-2403USA004245

PATIENT
  Sex: Male

DRUGS (2)
  1. KEYTRUDA [Suspect]
     Active Substance: PEMBROLIZUMAB
     Indication: Head and neck cancer
     Dosage: UNKNOWN BY REPORTER / EVERY 6 WEEKS
     Route: 042
     Dates: start: 20230518
  2. AMBIEN [Concomitant]
     Active Substance: ZOLPIDEM TARTRATE

REACTIONS (3)
  - Insomnia [Not Recovered/Not Resolved]
  - Sinusitis [Unknown]
  - Brain fog [Unknown]

NARRATIVE: CASE EVENT DATE: 20230101
